APPROVED DRUG PRODUCT: TUBOCURARINE CHLORIDE
Active Ingredient: TUBOCURARINE CHLORIDE
Strength: 3MG/ML
Dosage Form/Route: INJECTABLE;INJECTION
Application: N005657 | Product #001
Applicant: BRISTOL MYERS SQUIBB CO
Approved: Approved Prior to Jan 1, 1982 | RLD: No | RS: No | Type: DISCN